FAERS Safety Report 25322725 (Version 1)
Quarter: 2025Q2

REPORT INFORMATION
  Report Type: Spontaneous
  Country: US (occurrence: US)
  Receive Date: 20250516
  Receipt Date: 20250516
  Transmission Date: 20250717
  Serious: Yes (Hospitalization, Disabling)
  Sender: SANDOZ
  Company Number: US-GLAXOSMITHKLINE-US2023GSK166816

PATIENT
  Age: 16 Year
  Sex: Female

DRUGS (5)
  1. BUPROPION [Suspect]
     Active Substance: BUPROPION
     Indication: Major depression
     Route: 048
  2. BUPROPION [Suspect]
     Active Substance: BUPROPION
     Indication: Antidepressant therapy
  3. METHYLPHENIDATE [Suspect]
     Active Substance: METHYLPHENIDATE
     Indication: Anxiolytic therapy
     Route: 048
  4. QUETIAPINE [Suspect]
     Active Substance: QUETIAPINE
     Indication: Antipsychotic therapy
     Route: 048
  5. QUETIAPINE [Suspect]
     Active Substance: QUETIAPINE
     Indication: Major depression

REACTIONS (3)
  - Gait disturbance [Unknown]
  - Suicide attempt [Unknown]
  - Intentional overdose [Unknown]
